FAERS Safety Report 8100185-X (Version None)
Quarter: 2012Q1

REPORT INFORMATION
  Report Type: 
  Country: None (occurrence: None)
  Receive Date: 20120129
  Receipt Date: 20111130
  Transmission Date: 20120608
  Serious: Yes (Other)
  Sender: FDA-Public Use
  Company Number: US-ABBOTT-11P-163-0879363-00

PATIENT
  Age: 32 Year
  Sex: Female

DRUGS (4)
  1. METHOTREXATE [Concomitant]
     Indication: PAIN IN JAW
  2. HUMIRA [Suspect]
     Indication: ARTHRALGIA
     Dosage: PERIODICALLY SKIPPED UNTIL FEB 2009
     Dates: start: 20071001, end: 20100111
  3. METHOTREXATE [Concomitant]
     Indication: PAIN IN EXTREMITY
     Dates: start: 20030101
  4. HUMIRA [Suspect]
     Indication: RHEUMATOID ARTHRITIS

REACTIONS (8)
  - HOT FLUSH [None]
  - HODGKIN'S DISEASE [None]
  - ALOPECIA [None]
  - SINUSITIS [None]
  - NAUSEA [None]
  - INFLUENZA LIKE ILLNESS [None]
  - COUGH [None]
  - NIGHT SWEATS [None]
